FAERS Safety Report 25824226 (Version 1)
Quarter: 2025Q3

REPORT INFORMATION
  Report Type: Spontaneous
  Country: EU (occurrence: EU)
  Receive Date: 20250919
  Receipt Date: 20250919
  Transmission Date: 20251020
  Serious: Yes (Death, Other)
  Sender: BRACCO
  Company Number: None

PATIENT
  Age: 63 Year
  Sex: Male

DRUGS (9)
  1. SULFUR HEXAFLUORIDE [Suspect]
     Active Substance: SULFUR HEXAFLUORIDE
     Indication: Contrast echocardiogram
     Route: 042
     Dates: start: 20250806, end: 20250806
  2. SULFUR HEXAFLUORIDE [Suspect]
     Active Substance: SULFUR HEXAFLUORIDE
     Indication: Contrast echocardiogram
     Route: 042
     Dates: start: 20250806, end: 20250806
  3. SULFUR HEXAFLUORIDE [Suspect]
     Active Substance: SULFUR HEXAFLUORIDE
     Indication: Contrast echocardiogram
     Route: 042
     Dates: start: 20250806, end: 20250806
  4. ASPIRIN [Concomitant]
     Active Substance: ASPIRIN
     Dosage: 1 TABLET PER DAY
     Route: 048
  5. BISOPROLOL FUMARATE [Concomitant]
     Active Substance: BISOPROLOL FUMARATE
     Dosage: 1.5 TABLET PER DAY
     Route: 048
  6. LANSOPRAZOLE [Concomitant]
     Active Substance: LANSOPRAZOLE
     Dosage: 1 TABLET PER DAY
     Route: 048
  7. Rosuvastatina e ezetimibe doc [Concomitant]
     Dosage: 1 TABLET PER DAY
     Route: 048
  8. TICAGRELOR [Concomitant]
     Active Substance: TICAGRELOR
     Dosage: 1 TABLET PER DAY
     Route: 048
  9. VALSARTAN [Concomitant]
     Active Substance: VALSARTAN
     Dosage: 1.5 TABLET PER DAY
     Route: 048

REACTIONS (4)
  - Feeling hot [Fatal]
  - Malaise [Fatal]
  - Hypotension [Fatal]
  - Pulseless electrical activity [Fatal]

NARRATIVE: CASE EVENT DATE: 20250806
